FAERS Safety Report 18434698 (Version 1)
Quarter: 2020Q4

REPORT INFORMATION
  Report Type: Spontaneous
  Country: TR (occurrence: TR)
  Receive Date: 20201028
  Receipt Date: 20201028
  Transmission Date: 20210114
  Serious: No
  Sender: FDA-Public Use
  Company Number: TR-LUPIN PHARMACEUTICALS INC.-2020-06968

PATIENT
  Age: 65 Year
  Sex: Female

DRUGS (1)
  1. TRIAMCINOLONE ACETONIDE. [Suspect]
     Active Substance: TRIAMCINOLONE ACETONIDE
     Indication: NOTALGIA PARAESTHETICA
     Dosage: 10 MILLIGRAM PER MILLILITRE (0.1ML/CM2)
     Route: 023

REACTIONS (1)
  - Injection site atrophy [Recovered/Resolved]
